FAERS Safety Report 22271773 (Version 3)
Quarter: 2023Q2

REPORT INFORMATION
  Report Type: Other
  Country: US (occurrence: None)
  Receive Date: 20230502
  Receipt Date: 20230531
  Transmission Date: 20230721
  Serious: Yes (Other)
  Sender: FDA-Public Use
  Company Number: US-ROCHE-3337311

PATIENT
  Age: 27 Year
  Sex: Female

DRUGS (2)
  1. OCREVUS [Suspect]
     Active Substance: OCRELIZUMAB
     Indication: Anxiety disorder
     Dosage: INFUSE 300 MG IV, SECOND DOSE 300MG IV 15 DAYS LATER
     Route: 042
  2. OCREVUS [Suspect]
     Active Substance: OCRELIZUMAB
     Indication: Focal dyscognitive seizures

REACTIONS (2)
  - Hepatitis B [Unknown]
  - Off label use [Unknown]
